FAERS Safety Report 8117629-X (Version None)
Quarter: 2012Q1

REPORT INFORMATION
  Report Type: 
  Country: None (occurrence: None)
  Receive Date: 20120207
  Receipt Date: 20120201
  Transmission Date: 20120608
  Serious: No
  Sender: FDA-Public Use
  Company Number: US-BIOGENIDEC-2012BI004017

PATIENT
  Sex: Male

DRUGS (2)
  1. PAIN MEDICINE [Concomitant]
     Indication: PAIN
  2. AVONEX [Suspect]
     Indication: MULTIPLE SCLEROSIS
     Route: 030
     Dates: start: 19990101, end: 20040501

REACTIONS (3)
  - PAIN [None]
  - SPEECH DISORDER [None]
  - GAIT DISTURBANCE [None]
